FAERS Safety Report 6099227-5 (Version None)
Quarter: 2009Q1

REPORT INFORMATION
  Report Type: 
  Country: None (occurrence: None)
  Receive Date: 20090303
  Receipt Date: 20090226
  Transmission Date: 20090719
  Serious: Yes (Death)
  Sender: FDA-Public Use
  Company Number: PH-JNJFOC-20090205889

PATIENT
  Age: 50 Year

DRUGS (3)
  1. DORIBAX [Suspect]
     Indication: WHITE BLOOD CELL COUNT INCREASED
     Route: 041
  2. TAZOCIN [Concomitant]
     Route: 042
  3. MEROPENEM [Concomitant]
     Route: 042

REACTIONS (2)
  - CONVULSION [None]
  - VENTRICULAR TACHYCARDIA [None]
